FAERS Safety Report 11775112 (Version 1)
Quarter: 2015Q4

REPORT INFORMATION
  Report Type: Report from Study
  Country: US (occurrence: US)
  Receive Date: 20151124
  Receipt Date: 20151124
  Transmission Date: 20160304
  Serious: Yes (Hospitalization)
  Sender: FDA-Public Use
  Company Number: US-ABBVIE-15P-163-1505579-00

PATIENT
  Age: 75 Year
  Sex: Female

DRUGS (1)
  1. DUOPA [Suspect]
     Active Substance: CARBIDOPA\LEVODOPA
     Indication: PARKINSON^S DISEASE
     Route: 050
     Dates: start: 2013, end: 20151120

REACTIONS (10)
  - Device kink [Unknown]
  - Hallucination [Unknown]
  - Confusional state [Not Recovered/Not Resolved]
  - Device damage [Recovered/Resolved]
  - Medical device change [Recovered/Resolved]
  - Urinary tract infection [Not Recovered/Not Resolved]
  - Unintentional medical device removal [Recovered/Resolved]
  - Infection [Unknown]
  - Pyrexia [Not Recovered/Not Resolved]
  - Device alarm issue [Unknown]

NARRATIVE: CASE EVENT DATE: 201511
